FAERS Safety Report 5580998-9 (Version None)
Quarter: 2007Q4

REPORT INFORMATION
  Report Type: 
  Country: None (occurrence: None)
  Receive Date: 20071228
  Receipt Date: 20071219
  Transmission Date: 20080405
  Serious: Yes (Hospitalization)
  Sender: FDA-Public Use
  Company Number: 2007-05858

PATIENT
  Age: 31 Year
  Sex: Male

DRUGS (1)
  1. ANDRODERM [Suspect]
     Indication: MUSCLE BUILDING THERAPY

REACTIONS (2)
  - HEPATIC ADENOMA [None]
  - HEPATIC HAEMORRHAGE [None]
